FAERS Safety Report 8914480 (Version 1)
Quarter: 2012Q4

REPORT INFORMATION
  Report Type: 
  Country: SK (occurrence: SK)
  Receive Date: 20121116
  Receipt Date: 20121116
  Transmission Date: 20130627
  Serious: Yes (Death, Congenital Anomaly, Other)
  Sender: FDA-Public Use
  Company Number: SK-UCBSA-070457

PATIENT

DRUGS (5)
  1. VIMPAT [Suspect]
     Indication: EPILEPSY
     Route: 064
     Dates: start: 20120118
  2. TOPIRAMAT [Concomitant]
     Indication: EPILEPSY
     Dosage: 100-0-150 MG
     Route: 064
     Dates: start: 20120118, end: 20120718
  3. PYRIDOXIN [Concomitant]
     Indication: EPILEPSY
     Dosage: 1-0-1
     Route: 064
     Dates: start: 20120118, end: 20120718
  4. KETOSTERIL [Concomitant]
     Indication: RENAL FAILURE CHRONIC
     Route: 064
     Dates: start: 20120118, end: 20120718
  5. MILURIT [Concomitant]
     Indication: RENAL FAILURE CHRONIC
     Dosage: 1-0-0
     Route: 064
     Dates: start: 20120118, end: 20120718

REACTIONS (4)
  - Developmental delay [Fatal]
  - Pulmonary hypoplasia [Unknown]
  - Congenital cystic kidney disease [Unknown]
  - Foetal exposure during pregnancy [Recovered/Resolved]
